FAERS Safety Report 6213836-1 (Version None)
Quarter: 2009Q2

REPORT INFORMATION
  Report Type: 
  Country: None (occurrence: None)
  Receive Date: 20090601
  Receipt Date: 20090601
  Transmission Date: 20091009
  Serious: Yes (Other)
  Sender: FDA-Public Use
  Company Number: None

PATIENT
  Age: 51 Year
  Sex: Female
  Weight: 75.7507 kg

DRUGS (1)
  1. ROGAINE (FOR WOMEN) [Suspect]
     Indication: ALOPECIA
     Dosage: INTRACORONARY
     Route: 022
     Dates: start: 20070201, end: 20090522

REACTIONS (4)
  - ANXIETY [None]
  - DRUG INEFFECTIVE [None]
  - PRURITUS [None]
  - SKIN EXFOLIATION [None]
